FAERS Safety Report 23064108 (Version 1)
Quarter: 2023Q4

REPORT INFORMATION
  Report Type: Spontaneous
  Country: NL (occurrence: NL)
  Receive Date: 20231013
  Receipt Date: 20231013
  Transmission Date: 20240110
  Serious: Yes (Other)
  Sender: FDA-Public Use
  Company Number: None

PATIENT
  Age: 54 Year
  Sex: Male
  Weight: 102 kg

DRUGS (1)
  1. NORTRIPTYLINE [Suspect]
     Active Substance: NORTRIPTYLINE
     Indication: Pain
     Dosage: UNK
     Route: 065
     Dates: start: 20230914

REACTIONS (2)
  - Laryngeal oedema [Not Recovered/Not Resolved]
  - Laryngeal pain [Not Recovered/Not Resolved]
